FAERS Safety Report 7540883-X (Version None)
Quarter: 2011Q2

REPORT INFORMATION
  Report Type: 
  Country: None (occurrence: None)
  Receive Date: 20110610
  Receipt Date: 20110526
  Transmission Date: 20111010
  Serious: Yes (Life-Threatening)
  Sender: FDA-Public Use
  Company Number: PE-UCBSA-033087

PATIENT
  Sex: Male
  Weight: 85 kg

DRUGS (9)
  1. SULCONAR [Concomitant]
     Indication: PARKINSON'S DISEASE
     Dosage: 250/25
     Dates: start: 20100301
  2. DIMENHYDRINATE [Concomitant]
     Indication: DIZZINESS
     Dosage: FREQUENCY REPORTED AS BIW
     Dates: start: 20081001
  3. SELEGILINE [Concomitant]
     Indication: PARKINSON'S DISEASE
     Dates: start: 20100301
  4. BIPERIDENO [Concomitant]
     Indication: PARKINSON'S DISEASE
     Dates: start: 20100301
  5. ROTIGOTINE [Suspect]
     Indication: PARKINSON'S DISEASE
     Dosage: 2MG/24HOURS
     Route: 062
     Dates: end: 20110518
  6. ZOPICLONA [Concomitant]
     Indication: INSOMNIA
     Dates: start: 20110228
  7. SULFATO FERROSO [Concomitant]
     Indication: ANAEMIA
     Dates: start: 20110318
  8. OMEPRAZOLE [Concomitant]
     Indication: GASTRIC ULCER
     Dates: start: 20101001
  9. CLOTRIMAZOL [Concomitant]
     Indication: FUNGAL SKIN INFECTION
     Dates: start: 20110220

REACTIONS (1)
  - BUNDLE BRANCH BLOCK LEFT [None]
